FAERS Safety Report 10561811 (Version 2)
Quarter: 2014Q4

REPORT INFORMATION
  Report Type: Report from Study
  Country: US (occurrence: US)
  Receive Date: 20141103
  Receipt Date: 20141104
  Transmission Date: 20150529
  Serious: Yes (Hospitalization)
  Sender: FDA-Public Use
  Company Number: US-009507513-1410USA015586

PATIENT
  Age: 36 Year
  Sex: Female
  Weight: 91.5 kg

DRUGS (3)
  1. VORINOSTAT [Suspect]
     Active Substance: VORINOSTAT
     Indication: ACUTE MYELOID LEUKAEMIA
     Dosage: 500 MG (3X/DAY) ON DAYS 1-3, EVERY CYCLE 28 DAYS, CYCLICAL
     Route: 048
     Dates: start: 20141014, end: 20141016
  2. CYTARABINE. [Suspect]
     Active Substance: CYTARABINE
     Indication: ACUTE MYELOID LEUKAEMIA
     Dosage: 1500 MG/M2/DAY CONTINOUS INTRAVENOUS FUSION ON DAYS 4-7, EVERY CYCLE 28 DAYS, CYCLICAL
     Route: 042
     Dates: start: 20141017, end: 20141020
  3. IDARUBICIN [Suspect]
     Active Substance: IDARUBICIN
     Indication: ACUTE MYELOID LEUKAEMIA
     Dosage: 12 MG/M2/DAY INTRAVENOUS OVER 15 MINUTES ON DAYS 4-6, EVERY CYCLE 28 DAYS, CYCLICAL
     Route: 042
     Dates: start: 20141017, end: 20141019

REACTIONS (1)
  - Stomatitis [Not Recovered/Not Resolved]

NARRATIVE: CASE EVENT DATE: 20141026
